FAERS Safety Report 22151785 (Version 1)
Quarter: 2023Q1

REPORT INFORMATION
  Report Type: Spontaneous
  Country: US (occurrence: US)
  Receive Date: 20230329
  Receipt Date: 20230329
  Transmission Date: 20230418
  Serious: No
  Sender: FDA-Public Use
  Company Number: US-ARIS GLOBAL-NPA-2023-00515

PATIENT
  Age: 36 Year
  Sex: Female

DRUGS (2)
  1. HYFTOR [Suspect]
     Active Substance: SIROLIMUS
     Indication: Tuberous sclerosis complex
     Dosage: APPLY 2.5CM TOPICAL GEL TO THE AFFECTED AREA OF FACE TWICE A DAY AT MORNING AND BEDTIME
     Dates: start: 20230221
  2. VITAMIN C [Concomitant]
     Active Substance: ASCORBIC ACID

REACTIONS (1)
  - Application site dryness [Unknown]
